FAERS Safety Report 6023809-X (Version None)
Quarter: 2008Q4

REPORT INFORMATION
  Report Type: 
  Country: None (occurrence: None)
  Receive Date: 20081230
  Receipt Date: 20081208
  Transmission Date: 20090506
  Serious: Yes (Hospitalization)
  Sender: FDA-Public Use
  Company Number: AT-PFIZER INC-2008089998

PATIENT

DRUGS (6)
  1. SUNITINIB MALATE [Suspect]
     Indication: METASTATIC RENAL CELL CARCINOMA
     Dosage: 50 MG, 1X/DAY
     Route: 048
     Dates: start: 20080812
  2. ENZASTAURINE [Suspect]
     Indication: METASTATIC RENAL CELL CARCINOMA
     Route: 048
     Dates: start: 20080812
  3. ESOMEPRAZOLE MAGNESIUM [Concomitant]
     Dates: start: 20080430
  4. TRAMADOL [Concomitant]
     Dates: start: 20080430
  5. METAMIZOLE MAGNESIUM [Concomitant]
     Dates: start: 20080430
  6. GABAPENTIN [Concomitant]
     Dates: start: 20080430

REACTIONS (1)
  - METASTASES TO BONE [None]
